FAERS Safety Report 5708978-0 (Version None)
Quarter: 2008Q2

REPORT INFORMATION
  Report Type: 
  Country: None (occurrence: None)
  Receive Date: 20080418
  Receipt Date: 20080409
  Transmission Date: 20081010
  Serious: Yes (Hospitalization)
  Sender: FDA-Public Use
  Company Number: NL-TEVA-169951ISR

PATIENT
  Sex: Female
  Weight: 80 kg

DRUGS (8)
  1. DOXYCYCLINE [Suspect]
     Indication: RESPIRATORY TRACT INFECTION
     Dates: start: 20080130, end: 20080130
  2. MOXIFLOXACIN HYDROCHLORIDE [Suspect]
     Indication: RESPIRATORY TRACT INFECTION
     Dates: start: 20080131, end: 20080205
  3. SIMVASTATIN [Concomitant]
  4. GLIMEPIRIDE [Concomitant]
  5. ROSIGLITAZONE MALEATE [Concomitant]
  6. LEVOTHYROXINE SODIUM [Concomitant]
  7. AMLODIPINE [Concomitant]
  8. CLOPIDOGREL [Concomitant]

REACTIONS (1)
  - TOXIC EPIDERMAL NECROLYSIS [None]
